FAERS Safety Report 17131152 (Version 3)
Quarter: 2020Q1

REPORT INFORMATION
  Report Type: Spontaneous
  Country: FR (occurrence: FR)
  Receive Date: 20191209
  Receipt Date: 20200115
  Transmission Date: 20200409
  Serious: Yes (Death, Hospitalization, Other)
  Sender: FDA-Public Use
  Company Number: FR-009507513-1912FRA002428

PATIENT
  Age: 51 Year
  Sex: Female

DRUGS (2)
  1. VIREAD [Suspect]
     Active Substance: TENOFOVIR DISOPROXIL FUMARATE
     Indication: HEPATITIS B
     Dosage: 245 MILLIGRAM, EVERY 1 WEEK
     Route: 048
     Dates: start: 20141120
  2. ZEPATIER [Suspect]
     Active Substance: ELBASVIR\GRAZOPREVIR
     Indication: HEPATITIS C
     Dosage: UNK
     Route: 048
     Dates: start: 20160413, end: 20160928

REACTIONS (6)
  - Medical device site calcification [Recovered/Resolved]
  - Superior vena cava syndrome [Not Recovered/Not Resolved]
  - Malignant peritoneal neoplasm [Fatal]
  - Pyelonephritis [Not Recovered/Not Resolved]
  - Breast prosthesis removal [Recovered/Resolved]
  - Hyperparathyroidism secondary [Recovered/Resolved]

NARRATIVE: CASE EVENT DATE: 201609
